FAERS Safety Report 15233876 (Version 1)
Quarter: 2018Q3

REPORT INFORMATION
  Report Type: Spontaneous
  Country: CZ (occurrence: CZ)
  Receive Date: 20180802
  Receipt Date: 20180802
  Transmission Date: 20181010
  Serious: Yes (Other)
  Sender: FDA-Public Use
  Company Number: PHHY2018CZ061447

PATIENT
  Age: 62 Year
  Sex: Female
  Weight: 88 kg

DRUGS (1)
  1. PACLITAXEL EBEWE [Suspect]
     Active Substance: PACLITAXEL
     Indication: BREAST CANCER
     Dosage: 100 MG, UNK
     Route: 065

REACTIONS (3)
  - Dyspnoea [Recovered/Resolved]
  - Flushing [Recovered/Resolved]
  - Chest discomfort [Recovered/Resolved]

NARRATIVE: CASE EVENT DATE: 20171101
